FAERS Safety Report 22256667 (Version 5)
Quarter: 2023Q4

REPORT INFORMATION
  Report Type: Spontaneous
  Country: US (occurrence: US)
  Receive Date: 20230426
  Receipt Date: 20231016
  Transmission Date: 20240110
  Serious: No
  Sender: FDA-Public Use
  Company Number: US-KARYOPHARM-2023KPT001089

PATIENT

DRUGS (16)
  1. XPOVIO [Suspect]
     Active Substance: SELINEXOR
     Indication: Plasma cell myeloma
     Dosage: 40 MG, WEEKLY
     Route: 048
     Dates: start: 20230407, end: 2023
  2. XPOVIO [Suspect]
     Active Substance: SELINEXOR
     Dosage: 20 MG, WEEKLY
     Route: 048
     Dates: start: 2023, end: 2023
  3. XPOVIO [Suspect]
     Active Substance: SELINEXOR
     Dosage: 20 MG, WEEKLY
     Route: 048
     Dates: start: 2023
  4. ALAMAX [Concomitant]
  5. ALLOPURINOL [Concomitant]
     Active Substance: ALLOPURINOL
  6. CALCITONIN [Concomitant]
     Active Substance: CALCITONIN
  7. CELEBREX [Concomitant]
     Active Substance: CELECOXIB
  8. DOXYCYCLINE [Concomitant]
     Active Substance: DOXYCYCLINE
  9. FUROSEMIDE [Concomitant]
     Active Substance: FUROSEMIDE
  10. LISINOPRIL AND HYDROCHLOROTHIAZIDE [Concomitant]
     Active Substance: HYDROCHLOROTHIAZIDE\LISINOPRIL
  11. NATTOKINASE [Concomitant]
     Active Substance: NATTOKINASE
  12. PREDNISONE [Concomitant]
     Active Substance: PREDNISONE
  13. BORTEZOMIB [Concomitant]
     Active Substance: BORTEZOMIB
  14. ONDANSETRON [Concomitant]
     Active Substance: ONDANSETRON
  15. DEXAMETHASONE [Concomitant]
     Active Substance: DEXAMETHASONE
  16. DRONABINOL [Concomitant]
     Active Substance: DRONABINOL

REACTIONS (10)
  - Plasma cells increased [Not Recovered/Not Resolved]
  - Haematocrit decreased [Recovered/Resolved]
  - Fatigue [Unknown]
  - Dizziness [Unknown]
  - Asthenia [Not Recovered/Not Resolved]
  - Nausea [Unknown]
  - Decreased appetite [Unknown]
  - Vomiting [Unknown]
  - Haemoglobin decreased [Recovered/Resolved]
  - Diarrhoea [Unknown]

NARRATIVE: CASE EVENT DATE: 20230101
